FAERS Safety Report 16610157 (Version 2)
Quarter: 2019Q3

REPORT INFORMATION
  Report Type: Spontaneous
  Country: GB (occurrence: GB)
  Receive Date: 20190722
  Receipt Date: 20190731
  Transmission Date: 20191004
  Serious: Yes (Hospitalization, Other)
  Sender: FDA-Public Use
  Company Number: GB-NOVOPROD-673659

PATIENT
  Age: 43 Year
  Sex: Female

DRUGS (2)
  1. NOVORAPID [Suspect]
     Active Substance: INSULIN ASPART
     Indication: TYPE 1 DIABETES MELLITUS
     Dosage: 16 IU, QD
     Route: 058
  2. NOVORAPID [Suspect]
     Active Substance: INSULIN ASPART
     Dosage: 16 IU, QD
     Route: 058

REACTIONS (5)
  - Product leakage [Unknown]
  - Product physical issue [Unknown]
  - Diabetic ketoacidosis [Recovered/Resolved]
  - Diabetic ketoacidosis [Recovered/Resolved]
  - Product leakage [Unknown]

NARRATIVE: CASE EVENT DATE: 20190710
